FAERS Safety Report 6255502-2 (Version None)
Quarter: 2009Q2

REPORT INFORMATION
  Report Type: 
  Country: None (occurrence: None)
  Receive Date: 20090630
  Receipt Date: 20090619
  Transmission Date: 20091009
  Serious: Yes (Life-Threatening, Hospitalization)
  Sender: FDA-Public Use
  Company Number: 1-18696822

PATIENT
  Age: 71 Year
  Sex: Male

DRUGS (6)
  1. WARFARIN SODIUM [Suspect]
     Indication: ANTICOAGULANT THERAPY
     Dosage: ORAL
     Route: 048
     Dates: start: 20090429
  2. ASPIRIN [Concomitant]
  3. LOVASTATIN [Concomitant]
  4. METOPROLOL SUCCINATE [Concomitant]
  5. DIGOXIN 0.2 MG [Concomitant]
  6. SPIRONOLACTONE [Concomitant]

REACTIONS (3)
  - HAEMOGLOBIN DECREASED [None]
  - INTESTINAL OBSTRUCTION [None]
  - PERITONEAL HAEMORRHAGE [None]
